FAERS Safety Report 7937563-5 (Version None)
Quarter: 2011Q4

REPORT INFORMATION
  Report Type: 
  Country: None (occurrence: None)
  Receive Date: 20111123
  Receipt Date: 20111114
  Transmission Date: 20120403
  Serious: Yes (Hospitalization, Other)
  Sender: FDA-Public Use
  Company Number: ES-ELI_LILLY_AND_COMPANY-ES201111004463

PATIENT
  Age: 73 Year
  Sex: Male

DRUGS (19)
  1. ALIMTA [Suspect]
     Dosage: UNK, UNKNOWN
  2. FOLI-DOCE [Concomitant]
  3. ACETAMINOPHEN [Concomitant]
     Dosage: 1000 MG, EVERY 8 HRS
  4. PANTOPRAZOLE [Concomitant]
     Dosage: 40 MG, EVERY 8 HRS
  5. DEXAMETHASONE [Concomitant]
     Dosage: 4 MG, EVERY 12 HOURS DAY BEFORE CHEMO AND DAY AFTER
     Dates: start: 20111110
  6. METFORMIN [Concomitant]
     Dosage: 850 MG, UNK
     Route: 048
  7. CARBOHYDRATES/PROTEINS/MINERALS/VITAMINS, COM [Concomitant]
  8. LOPERAMIDE HCL [Concomitant]
     Dosage: 2 MG, EVERY 6 HRS
  9. SIMVASTATIN [Concomitant]
     Dosage: 20 MG, UNK
     Route: 048
  10. TRAMADOL HCL [Concomitant]
     Indication: PAIN
     Dosage: UNK, UNKNOWN
  11. ENALAPRIL MALEATE [Concomitant]
     Dosage: 10 MG, QD
     Route: 048
  12. THERAPEUTIC RADIOPHARMACEUTICALS [Concomitant]
     Dosage: UNK
     Dates: start: 20110928, end: 20111011
  13. IBUPROFEN [Concomitant]
     Indication: PAIN
     Dosage: UNK, UNKNOWN
  14. CLOPIDOGREL [Concomitant]
     Dosage: 75 MG, QD
     Route: 048
  15. GOSERELIN [Concomitant]
     Dosage: 10.8 MG, UNK
     Route: 058
     Dates: start: 20110511
  16. AMITRIPTYLINE HCL [Concomitant]
     Dosage: 25 MG, QD
  17. CARBOPLATIN [Concomitant]
     Dosage: UNK, UNKNOWN
  18. UROLOSIN [Concomitant]
     Dosage: 0.4 MG, UNK
     Route: 048
  19. HYDROMORPHONE HCL [Concomitant]
     Dosage: 12 MG, QD

REACTIONS (10)
  - TACHYCARDIA [None]
  - MALAISE [None]
  - CHEST PAIN [None]
  - ERYTHEMA [None]
  - HYPOTENSION [None]
  - SKIN INJURY [None]
  - DIARRHOEA [None]
  - HYPOPHAGIA [None]
  - PANCYTOPENIA [None]
  - MUCOSAL INFLAMMATION [None]
